FAERS Safety Report 11605166 (Version 1)
Quarter: 2015Q4

REPORT INFORMATION
  Report Type: Spontaneous
  Country: FR (occurrence: FR)
  Receive Date: 20151007
  Receipt Date: 20151007
  Transmission Date: 20160304
  Serious: Yes (Hospitalization)
  Sender: FDA-Public Use
  Company Number: FR-TEVA-598279ISR

PATIENT
  Age: 49 Year
  Sex: Male

DRUGS (17)
  1. DOXORUBICINE TEVA 50 MG/25 ML [Suspect]
     Active Substance: DOXORUBICIN
     Indication: LUNG CARCINOMA CELL TYPE UNSPECIFIED STAGE IV
     Dosage: 82 MILLIGRAM DAILY; PAVEP PROTOCOL- ONE SINGLE ADMINISTRATION
     Route: 041
     Dates: start: 20150725, end: 20150725
  2. CISPLATINE ACCORD 1MG/ML [Suspect]
     Active Substance: CISPLATIN
     Indication: LUNG CARCINOMA CELL TYPE UNSPECIFIED STAGE IV
     Dosage: PAVEP PROTOCOL - ONE SINGLE ADMINISTRATION
     Route: 041
     Dates: start: 20150726
  3. ETOPOSIDE MYLAN 20 MG/ML [Suspect]
     Active Substance: ETOPOSIDE
     Indication: LUNG CARCINOMA CELL TYPE UNSPECIFIED STAGE IV
     Dosage: 152 MILLIGRAM DAILY; PAVEP PROTOCOL
     Route: 041
     Dates: start: 20150725, end: 20150727
  4. ECONAZOLE [Concomitant]
     Active Substance: ECONAZOLE
  5. THIOCOLCHICOSIDE [Concomitant]
     Active Substance: THIOCOLCHICOSIDE
  6. ENDOXAN 1000 MG [Suspect]
     Active Substance: CYCLOPHOSPHAMIDE
     Indication: LUNG CARCINOMA CELL TYPE UNSPECIFIED STAGE IV
     Dosage: 600 MILLIGRAM DAILY; PAVEP PROTOCOL
     Route: 041
     Dates: start: 20150726, end: 20150729
  7. IMOVANE [Concomitant]
     Active Substance: ZOPICLONE
  8. EDUCTYL [Concomitant]
     Active Substance: POTASSIUM BITARTRATE\SODIUM BICARBONATE
  9. SYMBICORT [Concomitant]
     Active Substance: BUDESONIDE\FORMOTEROL FUMARATE DIHYDRATE
  10. FUNGIZONE [Concomitant]
     Active Substance: AMPHOTERICIN B
  11. TRAMADOL. [Concomitant]
     Active Substance: TRAMADOL
  12. ZARZIO [Concomitant]
     Active Substance: FILGRASTIM
     Dosage: COURSE OF 7 DAYS
  13. SPIRIVA [Concomitant]
     Active Substance: TIOTROPIUM BROMIDE MONOHYDRATE
  14. AMPHOTERICINE B [Concomitant]
     Active Substance: AMPHOTERICIN B
  15. MOVICOL [Concomitant]
     Active Substance: POLYETHYLENE GLYCOL 3350\POTASSIUM CHLORIDE\SODIUM BICARBONATE\SODIUM CHLORIDE
  16. ALPRAZOLAM. [Concomitant]
     Active Substance: ALPRAZOLAM
  17. SUBUTEX [Concomitant]
     Active Substance: BUPRENORPHINE HYDROCHLORIDE

REACTIONS (1)
  - Pancytopenia [Recovered/Resolved]

NARRATIVE: CASE EVENT DATE: 20150804
